FAERS Safety Report 13270658 (Version 1)
Quarter: 2017Q1

REPORT INFORMATION
  Report Type: Spontaneous
  Country: GB (occurrence: GB)
  Receive Date: 20170224
  Receipt Date: 20170224
  Transmission Date: 20170428
  Serious: Yes (Other)
  Sender: FDA-Public Use
  Company Number: GB-JNJFOC-20170212370

PATIENT
  Age: 63 Year
  Sex: Male
  Weight: 65 kg

DRUGS (20)
  1. CODEINE PHOSPHATE [Suspect]
     Active Substance: CODEINE PHOSPHATE
     Indication: GASTROINTESTINAL STOMA COMPLICATION
     Route: 048
     Dates: start: 20170201
  2. PARACETAMOL [Concomitant]
     Active Substance: ACETAMINOPHEN
     Route: 065
  3. SIMVASTATIN. [Concomitant]
     Active Substance: SIMVASTATIN
     Route: 065
  4. QUININE SULFATE. [Concomitant]
     Active Substance: QUININE SULFATE
     Route: 065
  5. DILZEM [Concomitant]
     Active Substance: DILTIAZEM
     Route: 065
  6. LOPERAMIDE [Suspect]
     Active Substance: LOPERAMIDE
     Indication: GASTROINTESTINAL STOMA COMPLICATION
     Route: 048
     Dates: start: 20170128, end: 20170131
  7. AMITRIPTYLINE [Concomitant]
     Active Substance: AMITRIPTYLINE
     Dosage: AT NIGHT
     Route: 065
  8. OMEPRAZOLE. [Concomitant]
     Active Substance: OMEPRAZOLE
     Route: 065
  9. CODEINE PHOSPHATE [Suspect]
     Active Substance: CODEINE PHOSPHATE
     Indication: GASTROINTESTINAL STOMA COMPLICATION
     Route: 048
     Dates: start: 20170130, end: 20170131
  10. CODEINE PHOSPHATE [Suspect]
     Active Substance: CODEINE PHOSPHATE
     Indication: GASTROINTESTINAL STOMA COMPLICATION
     Route: 048
     Dates: start: 20170128, end: 20170129
  11. CODEINE PHOSPHATE [Suspect]
     Active Substance: CODEINE PHOSPHATE
     Indication: GASTROINTESTINAL STOMA COMPLICATION
     Route: 048
     Dates: start: 20170130, end: 20170131
  12. CODEINE PHOSPHATE [Suspect]
     Active Substance: CODEINE PHOSPHATE
     Indication: GASTROINTESTINAL STOMA COMPLICATION
     Route: 048
     Dates: start: 20170128, end: 20170129
  13. CODEINE PHOSPHATE [Suspect]
     Active Substance: CODEINE PHOSPHATE
     Indication: GASTROINTESTINAL STOMA COMPLICATION
     Route: 048
     Dates: start: 20170201
  14. LOPERAMIDE [Suspect]
     Active Substance: LOPERAMIDE
     Indication: GASTROINTESTINAL STOMA COMPLICATION
     Route: 048
     Dates: start: 20170201
  15. DALTEPARIN [Concomitant]
     Active Substance: DALTEPARIN
     Dosage: AT TEATIME
     Route: 065
  16. CODEINE PHOSPHATE [Suspect]
     Active Substance: CODEINE PHOSPHATE
     Indication: GASTROINTESTINAL STOMA COMPLICATION
     Route: 048
     Dates: start: 20170130, end: 20170131
  17. CODEINE PHOSPHATE [Suspect]
     Active Substance: CODEINE PHOSPHATE
     Indication: GASTROINTESTINAL STOMA COMPLICATION
     Route: 048
     Dates: start: 20170201
  18. LEVOTHYROXINE. [Concomitant]
     Active Substance: LEVOTHYROXINE
     Dosage: IN THE MORNING
     Route: 065
  19. CHLORPHENAMINE [Concomitant]
     Active Substance: CHLORPHENIRAMINE MALEATE
     Route: 065
  20. CODEINE PHOSPHATE [Suspect]
     Active Substance: CODEINE PHOSPHATE
     Indication: GASTROINTESTINAL STOMA COMPLICATION
     Route: 048
     Dates: start: 20170128, end: 20170129

REACTIONS (3)
  - Toxicity to various agents [Recovered/Resolved]
  - Miosis [Recovered/Resolved]
  - Respiratory depression [Recovered/Resolved]

NARRATIVE: CASE EVENT DATE: 20170202
